FAERS Safety Report 7594991-8 (Version None)
Quarter: 2011Q3

REPORT INFORMATION
  Report Type: 
  Country: None (occurrence: None)
  Receive Date: 20110707
  Receipt Date: 20110628
  Transmission Date: 20111222
  Serious: Yes (Hospitalization)
  Sender: FDA-Public Use
  Company Number: BR-US-EMD SERONO, INC.-7066242

PATIENT
  Sex: Female

DRUGS (6)
  1. REBIF [Suspect]
     Indication: SECONDARY PROGRESSIVE MULTIPLE SCLEROSIS
     Dates: start: 20081031
  2. TARGIFOR C [Concomitant]
  3. UNSPECIFIED MEDICATION [Concomitant]
     Indication: PAIN
  4. PHARMATON [Concomitant]
  5. CLONAZEPAM [Concomitant]
  6. TIAMINE HYDROCHLORIDE [Concomitant]

REACTIONS (6)
  - ERYSIPELAS [None]
  - LIMB INJURY [None]
  - BLOOD PRESSURE FLUCTUATION [None]
  - ASTHENIA [None]
  - URINARY TRACT INFECTION [None]
  - FATIGUE [None]
